FAERS Safety Report 7554757-1 (Version None)
Quarter: 2011Q2

REPORT INFORMATION
  Report Type: 
  Country: None (occurrence: None)
  Receive Date: 20110610
  Receipt Date: 20110602
  Transmission Date: 20111010
  Serious: Yes (Disabling)
  Sender: FDA-Public Use
  Company Number: 930799

PATIENT
  Age: 43 Year
  Sex: Female

DRUGS (1)
  1. PHENYTOIN [Suspect]
     Indication: GRAND MAL CONVULSION
     Dosage: INTRAVENOUS 350 MG PER DAY 300 MG PER DAY 325 MG PER DAY

REACTIONS (9)
  - HYDROCEPHALUS [None]
  - ACTIVITIES OF DAILY LIVING IMPAIRED [None]
  - COGNITIVE DISORDER [None]
  - SOMNOLENCE [None]
  - DISORIENTATION [None]
  - SUBARACHNOID HAEMORRHAGE [None]
  - DISTURBANCE IN ATTENTION [None]
  - DRUG LEVEL INCREASED [None]
  - CNS VENTRICULITIS [None]
